FAERS Safety Report 8373025-1 (Version None)
Quarter: 2012Q2

REPORT INFORMATION
  Report Type: 
  Country: None (occurrence: None)
  Receive Date: 20120521
  Receipt Date: 20120517
  Transmission Date: 20120825
  Serious: Yes (Death)
  Sender: FDA-Public Use
  Company Number: JP-B.I. PHARMACEUTICALS,INC./RIDGEFIELD-2012-BP-04905NB

PATIENT
  Sex: Male
  Weight: 59.8 kg

DRUGS (8)
  1. LANSOPRAZOLE [Suspect]
     Indication: RHEUMATOID ARTHRITIS
     Dosage: 15 MG
     Route: 048
  2. OLOPATADINE HCL [Suspect]
     Indication: RHEUMATOID ARTHRITIS
     Dosage: 5 MG
     Route: 048
  3. COTRIM [Suspect]
     Indication: RHEUMATOID ARTHRITIS
     Dosage: 1DF
     Route: 048
     Dates: start: 20100316, end: 20110901
  4. MICARDIS [Suspect]
     Indication: HYPERTENSION
     Dosage: 40 MG
     Route: 048
     Dates: start: 20100329
  5. PREDNISOLONE [Suspect]
     Indication: RHEUMATOID ARTHRITIS
     Dosage: 10 MG
     Route: 048
     Dates: start: 20080101, end: 20110901
  6. FOSAMAX [Suspect]
     Indication: RHEUMATOID ARTHRITIS
     Dosage: 5 MG
     Route: 048
     Dates: start: 20100316
  7. VOLTAREN [Suspect]
     Indication: RHEUMATOID ARTHRITIS
     Dosage: 75 MG
     Route: 048
     Dates: start: 20110221
  8. PROGRAF [Suspect]
     Indication: RHEUMATOID ARTHRITIS
     Dosage: 1.5 MG
     Route: 048
     Dates: start: 20110530, end: 20110725

REACTIONS (2)
  - INTERSTITIAL LUNG DISEASE [None]
  - RENAL IMPAIRMENT [None]
